FAERS Safety Report 21578228 (Version 2)
Quarter: 2022Q4

REPORT INFORMATION
  Report Type: Spontaneous
  Country: RU (occurrence: RU)
  Receive Date: 20221110
  Receipt Date: 20221202
  Transmission Date: 20230112
  Serious: Yes (Hospitalization, Other)
  Sender: FDA-Public Use
  Company Number: RU-VERTEX PHARMACEUTICALS-2022-015230

PATIENT
  Sex: Male
  Weight: 15.8 kg

DRUGS (3)
  1. ORKAMBI [Suspect]
     Active Substance: IVACAFTOR\LUMACAFTOR
     Indication: Cystic fibrosis
     Dosage: 1 PACKET (150 MG LUMACAFTOR/188 MG IVACAFTOR) BID
     Route: 048
     Dates: start: 20220612, end: 20220625
  2. ORKAMBI [Suspect]
     Active Substance: IVACAFTOR\LUMACAFTOR
     Dosage: 1 PACKET (150 MG LUMACAFTOR/188 MG IVACAFTOR) QD MORNING
     Route: 048
     Dates: start: 20220626, end: 202207
  3. ORKAMBI [Suspect]
     Active Substance: IVACAFTOR\LUMACAFTOR
     Dosage: 1 PACKET (150 MG LUMACAFTOR/188 MG IVACAFTOR) BID
     Route: 048
     Dates: start: 202207, end: 20221010

REACTIONS (11)
  - Hospitalisation [Unknown]
  - Alanine aminotransferase increased [Unknown]
  - Aspartate aminotransferase increased [Unknown]
  - Hepatic fibrosis [Not Recovered/Not Resolved]
  - Epistaxis [Recovered/Resolved]
  - Hypertension [Unknown]
  - Viral upper respiratory tract infection [Unknown]
  - Vomiting [Unknown]
  - Skin hyperpigmentation [Unknown]
  - Cholestasis [Unknown]
  - Sweat test abnormal [Unknown]

NARRATIVE: CASE EVENT DATE: 20220101
